FAERS Safety Report 7804422-8 (Version None)
Quarter: 2011Q4

REPORT INFORMATION
  Report Type: 
  Country: None (occurrence: None)
  Receive Date: 20111010
  Receipt Date: 20111003
  Transmission Date: 20120403
  Serious: Yes (Death)
  Sender: FDA-Public Use
  Company Number: US-GILEAD-2011-0043631

PATIENT

DRUGS (3)
  1. LETAIRIS [Suspect]
     Indication: EMPHYSEMA
  2. LETAIRIS [Suspect]
     Indication: PULMONARY HYPERTENSION
     Dosage: 10 MG, UNK
     Route: 048
     Dates: start: 20090618, end: 20110601
  3. LETAIRIS [Suspect]
     Indication: PULMONARY FIBROSIS

REACTIONS (3)
  - PULMONARY FIBROSIS [None]
  - PULMONARY HYPERTENSION [None]
  - EMPHYSEMA [None]
